FAERS Safety Report 17422787 (Version 1)
Quarter: 2020Q1

REPORT INFORMATION
  Report Type: Spontaneous
  Country: US (occurrence: US)
  Receive Date: 20200215
  Receipt Date: 20200215
  Transmission Date: 20200409
  Serious: Yes (Death, Other)
  Sender: FDA-Public Use
  Company Number: US-ABBVIE-19K-163-3139055-00

PATIENT

DRUGS (1)
  1. IMBRUVICA [Suspect]
     Active Substance: IBRUTINIB
     Indication: WALDENSTROM^S MACROGLOBULINAEMIA
     Route: 048

REACTIONS (21)
  - Drug intolerance [Unknown]
  - Neutropenia [Unknown]
  - Haematuria [Unknown]
  - Death [Fatal]
  - Thrombocytopenia [Unknown]
  - Anaemia [Unknown]
  - Cognitive disorder [Unknown]
  - Atrial fibrillation [Unknown]
  - Diarrhoea [Unknown]
  - Petechiae [Unknown]
  - Pneumonia [Unknown]
  - Neuropathy peripheral [Unknown]
  - Localised infection [Unknown]
  - Fatigue [Unknown]
  - Rash maculo-papular [Unknown]
  - Haemorrhage [Unknown]
  - Cellulitis [Unknown]
  - Headache [Unknown]
  - Gastrointestinal haemorrhage [Recovered/Resolved]
  - Hepatic enzyme increased [Unknown]
  - Rash vesicular [Recovered/Resolved]
